FAERS Safety Report 5448674-0 (Version None)
Quarter: 2007Q3

REPORT INFORMATION
  Report Type: 
  Country: None (occurrence: None)
  Receive Date: 20070906
  Receipt Date: 20070830
  Transmission Date: 20080115
  Serious: Yes (Hospitalization)
  Sender: FDA-Public Use
  Company Number: 2007BI003247

PATIENT
  Age: 51 Year
  Sex: Female

DRUGS (13)
  1. AVONEX [Suspect]
     Indication: MULTIPLE SCLEROSIS
     Dosage: 30 UG;QW;IM
     Dates: end: 20030801
  2. AVONEX [Suspect]
     Indication: MULTIPLE SCLEROSIS
     Dosage: 30 UG;QW;IM
     Dates: start: 20030801
  3. ZOCOR [Concomitant]
  4. LISINOPRIL [Concomitant]
  5. URSO 250 [Concomitant]
  6. PAXIL [Concomitant]
  7. PREVACID [Concomitant]
  8. ACTONEL [Concomitant]
  9. ENABLEX [Concomitant]
  10. PREMARIN [Concomitant]
  11. ADVAIR DISKUS 100/50 [Concomitant]
  12. GLUCOPHAGE [Concomitant]
  13. TOPROL-XL [Concomitant]

REACTIONS (3)
  - ASTHMA [None]
  - BRONCHITIS [None]
  - PNEUMONIA [None]
